FAERS Safety Report 5504127-2 (Version None)
Quarter: 2007Q4

REPORT INFORMATION
  Report Type: 
  Country: None (occurrence: None)
  Receive Date: 20071030
  Receipt Date: 20071016
  Transmission Date: 20080405
  Serious: Yes (Other)
  Sender: FDA-Public Use
  Company Number: 238938K07USA

PATIENT
  Age: 41 Year
  Sex: Female

DRUGS (2)
  1. REBIF [Suspect]
     Indication: MULTIPLE SCLEROSIS
     Dosage: 44 MCG, 3 IN 1 WEEKS, SUBCUTANEOUS
     Route: 058
     Dates: start: 20060613
  2. TYLENOL (TYLENOL) [Concomitant]

REACTIONS (5)
  - ABDOMINAL PAIN [None]
  - BREAST PAIN [None]
  - DYSGEUSIA [None]
  - GALLBLADDER DISORDER [None]
  - THROAT IRRITATION [None]
